FAERS Safety Report 18643457 (Version 1)
Quarter: 2020Q4

REPORT INFORMATION
  Report Type: Spontaneous
  Country: US (occurrence: US)
  Receive Date: 20201219
  Receipt Date: 20201219
  Transmission Date: 20210114
  Serious: Yes (Hospitalization)
  Sender: FDA-Public Use
  Company Number: None

PATIENT
  Age: 65 Year
  Sex: Male
  Weight: 105.7 kg

DRUGS (2)
  1. DAMORUBICIN [Concomitant]
     Active Substance: DAUNORUBICIN
  2. CYTARABINE. [Suspect]
     Active Substance: CYTARABINE
     Dates: end: 20201216

REACTIONS (9)
  - Abdominal pain [None]
  - Febrile neutropenia [None]
  - Haemoglobin decreased [None]
  - Duodenal perforation [None]
  - Pancreatic pseudocyst [None]
  - Obstruction gastric [None]
  - Haemoperitoneum [None]
  - Shock haemorrhagic [None]
  - Hypotension [None]

NARRATIVE: CASE EVENT DATE: 20201216
